FAERS Safety Report 9675466 (Version 3)
Quarter: 2013Q4

REPORT INFORMATION
  Report Type: Spontaneous
  Country: JP (occurrence: JP)
  Receive Date: 20131107
  Receipt Date: 20131113
  Transmission Date: 20140711
  Serious: Yes (Death, Other)
  Sender: FDA-Public Use
  Company Number: JP-BAYER-2013-105308

PATIENT
  Age: 63 Year
  Sex: Female
  Weight: 42 kg

DRUGS (9)
  1. STIVARGA [Suspect]
     Indication: COLORECTAL CANCER
     Dosage: 160 MG, QD
     Route: 048
     Dates: start: 20130822, end: 20130828
  2. STIVARGA [Suspect]
     Indication: COLORECTAL CANCER
     Dosage: 120 MG, QD
     Route: 048
     Dates: start: 20130905, end: 20130911
  3. MAGMITT [Concomitant]
     Dosage: DAILY DOSE 1980 MG
     Route: 048
     Dates: start: 20121117, end: 20130930
  4. PARIET [Concomitant]
     Dosage: DAILY DOSE 20 MG
     Route: 048
     Dates: start: 20130619, end: 20130930
  5. GASMOTIN [Concomitant]
     Dosage: DAILY DOSE 15 MG
     Route: 048
     Dates: start: 20130619, end: 20130930
  6. LOXONIN [Concomitant]
     Indication: COLON CANCER
     Dosage: DAILY DOSE 180 MG
     Route: 048
     Dates: start: 20130807, end: 20130930
  7. MYSLEE [Concomitant]
     Dosage: DAILY DOSE 5 MG
     Route: 048
     Dates: start: 20121122, end: 20130930
  8. OXYCONTIN [Concomitant]
     Indication: COLON CANCER
     Dosage: DAILY DOSE 10 MG
     Route: 048
     Dates: start: 20130821, end: 20130930
  9. NOVAMIN [Concomitant]
     Dosage: DAILY DOSE 15 MG
     Route: 048
     Dates: start: 20130821, end: 20130930

REACTIONS (5)
  - Gastrointestinal perforation [Fatal]
  - Peritonitis [Fatal]
  - Liver function test abnormal [Recovered/Resolved]
  - Platelet count decreased [Recovered/Resolved]
  - Palmar-plantar erythrodysaesthesia syndrome [Recovered/Resolved]
